FAERS Safety Report 10309231 (Version 3)
Quarter: 2014Q4

REPORT INFORMATION
  Report Type: Spontaneous
  Country: US (occurrence: US)
  Receive Date: 20140716
  Receipt Date: 20141124
  Transmission Date: 20150528
  Serious: Yes (Hospitalization)
  Sender: FDA-Public Use
  Company Number: US-GILEAD-2014-0108768

PATIENT
  Age: 26 Year
  Sex: Female

DRUGS (24)
  1. TRAMADOL [Concomitant]
     Active Substance: TRAMADOL
  2. LETAIRIS [Suspect]
     Active Substance: AMBRISENTAN
     Indication: UNEVALUABLE EVENT
  3. FOLIC ACID. [Concomitant]
     Active Substance: FOLIC ACID
  4. KLOR-CON [Concomitant]
     Active Substance: POTASSIUM CHLORIDE
  5. SPIRONOLACTONE. [Concomitant]
     Active Substance: SPIRONOLACTONE
  6. LASIX [Concomitant]
     Active Substance: FUROSEMIDE
  7. IRBESARTAN. [Concomitant]
     Active Substance: IRBESARTAN
  8. HYDROCODONE/APAP [Concomitant]
     Active Substance: ACETAMINOPHEN\HYDROCODONE
  9. KLONOPIN [Concomitant]
     Active Substance: CLONAZEPAM
  10. VITAMIN B12 [Concomitant]
     Active Substance: CYANOCOBALAMIN
  11. FERROUS SULFATE [Concomitant]
     Active Substance: FERROUS SULFATE\FERROUS SULFATE, DRIED
  12. LETAIRIS [Suspect]
     Active Substance: AMBRISENTAN
     Indication: PULMONARY ARTERIAL HYPERTENSION
     Dosage: 10 MG, UNK
     Route: 065
     Dates: start: 20071116
  13. ADEMPAS [Concomitant]
     Active Substance: RIOCIGUAT
  14. DEPO-PROVERA [Concomitant]
     Active Substance: MEDROXYPROGESTERONE ACETATE
  15. PREDNISONE. [Concomitant]
     Active Substance: PREDNISONE
  16. LETAIRIS [Suspect]
     Active Substance: AMBRISENTAN
     Indication: UNEVALUABLE EVENT
  17. TROMETHAMINE. [Concomitant]
     Active Substance: TROMETHAMINE
  18. ROZEREM [Concomitant]
     Active Substance: RAMELTEON
  19. ADCIRCA [Concomitant]
     Active Substance: TADALAFIL
  20. NORVASC [Concomitant]
     Active Substance: AMLODIPINE BESYLATE
  21. NEXIUM [Concomitant]
     Active Substance: ESOMEPRAZOLE MAGNESIUM
  22. TYLENOL WITH CODEINE [Concomitant]
     Active Substance: ACETAMINOPHEN\CODEINE PHOSPHATE
  23. FLUOXETINE [Concomitant]
     Active Substance: FLUOXETINE\FLUOXETINE HYDROCHLORIDE
  24. HYDROXYCHLOROQUINE [Concomitant]
     Active Substance: HYDROXYCHLOROQUINE

REACTIONS (2)
  - Chest pain [Not Recovered/Not Resolved]
  - Dyspnoea [Not Recovered/Not Resolved]
